FAERS Safety Report 17930616 (Version 1)
Quarter: 2020Q2

REPORT INFORMATION
  Report Type: Spontaneous
  Country: US (occurrence: US)
  Receive Date: 20200623
  Receipt Date: 20200623
  Transmission Date: 20200714
  Serious: No
  Sender: FDA-Public Use
  Company Number: US-MYLANLABS-2020M1056273

PATIENT
  Sex: Male

DRUGS (1)
  1. NITROGLYCERIN TRANSDERMAL DELIVERY SYSTEM [Suspect]
     Active Substance: NITROGLYCERIN
     Indication: PRODUCT USED FOR UNKNOWN INDICATION
     Dosage: 1 PATCH PER 24HRS
     Route: 062
     Dates: start: 2020

REACTIONS (5)
  - Off label use [Not Recovered/Not Resolved]
  - Application site acne [Not Recovered/Not Resolved]
  - Asthenia [Not Recovered/Not Resolved]
  - Application site pruritus [Not Recovered/Not Resolved]
  - Fatigue [Not Recovered/Not Resolved]
